FAERS Safety Report 15023535 (Version 1)
Quarter: 2018Q2

REPORT INFORMATION
  Report Type: Spontaneous
  Country: US (occurrence: US)
  Receive Date: 20180618
  Receipt Date: 20180618
  Transmission Date: 20180711
  Serious: No
  Sender: FDA-Public Use
  Company Number: US-BAYER-2018-107952

PATIENT
  Age: 88 Year
  Sex: Female
  Weight: 48 kg

DRUGS (2)
  1. ALEVE [Suspect]
     Active Substance: NAPROXEN SODIUM
     Indication: PAIN
     Dosage: ALEVE EASY OPEN ARTHRITIS TABLETS - EASY
     Route: 048
  2. TRANSDERM PATCH [Concomitant]

REACTIONS (2)
  - Product use issue [Unknown]
  - Throat irritation [Unknown]
